FAERS Safety Report 21713639 (Version 1)
Quarter: 2022Q4

REPORT INFORMATION
  Report Type: Report from Study
  Country: US (occurrence: None)
  Receive Date: 20221212
  Receipt Date: 20221212
  Transmission Date: 20230113
  Serious: Yes (Hospitalization)
  Sender: FDA-Public Use
  Company Number: US-ROCHE-3232547

PATIENT
  Age: 76 Year
  Sex: Male
  Weight: 60.3 kg

DRUGS (15)
  1. PIRFENIDONE [Suspect]
     Active Substance: PIRFENIDONE
     Indication: Idiopathic pulmonary fibrosis
     Dosage: ON 01/DEC/2022, RECEIVED MOST RECENT DOSE OF STUDY PIRFENIDONE PRIOR SAE IS 801 MG.
     Route: 048
     Dates: start: 20180817
  2. ACETAMINOPHEN [Concomitant]
     Active Substance: ACETAMINOPHEN
     Indication: Spinal osteoarthritis
     Route: 048
     Dates: start: 2019
  3. ALBUTEROL [Concomitant]
     Active Substance: ALBUTEROL
     Indication: Idiopathic pulmonary fibrosis
     Route: 045
     Dates: start: 20211123
  4. ASPIRIN [Concomitant]
     Active Substance: ASPIRIN
     Indication: Bundle branch block right
     Route: 048
     Dates: start: 20140906
  5. AZELASTINE [Concomitant]
     Active Substance: AZELASTINE
     Indication: Seasonal allergy
     Route: 045
     Dates: start: 20210122
  6. CHOLECALCIFEROL [Concomitant]
     Active Substance: CHOLECALCIFEROL
     Indication: Spinal osteoarthritis
     Dosage: DOSE 1000 U
     Route: 048
     Dates: start: 202101
  7. DUTASTERIDE [Concomitant]
     Active Substance: DUTASTERIDE
     Indication: Benign prostatic hyperplasia
     Route: 048
     Dates: start: 20180727
  8. TAMSULOSIN [Concomitant]
     Active Substance: TAMSULOSIN
     Indication: Benign prostatic hyperplasia
     Route: 048
     Dates: start: 20180727
  9. FLUTICASONE [Concomitant]
     Active Substance: FLUTICASONE
     Indication: Idiopathic pulmonary fibrosis
     Route: 045
     Dates: start: 20211127
  10. HYDROCORTISONE [Concomitant]
     Active Substance: HYDROCORTISONE
     Indication: Eczema
     Route: 061
     Dates: start: 20211220
  11. LEVOTHYROXINE [Concomitant]
     Active Substance: LEVOTHYROXINE
     Route: 048
     Dates: start: 20210708
  12. NAPROXEN SODIUM [Concomitant]
     Active Substance: NAPROXEN SODIUM
     Indication: Spinal osteoarthritis
     Route: 048
     Dates: start: 20140906
  13. PANTOPRAZOLE [Concomitant]
     Active Substance: PANTOPRAZOLE
     Indication: Gastrooesophageal reflux disease
     Route: 048
     Dates: start: 20191026
  14. TRAMADOL [Concomitant]
     Active Substance: TRAMADOL
     Route: 048
     Dates: start: 20210812
  15. TRAZODONE [Concomitant]
     Active Substance: TRAZODONE HYDROCHLORIDE
     Indication: Insomnia
     Route: 048
     Dates: start: 20180924

REACTIONS (1)
  - Lung transplant [Not Recovered/Not Resolved]

NARRATIVE: CASE EVENT DATE: 20221203
